FAERS Safety Report 5429962-0 (Version None)
Quarter: 2007Q3

REPORT INFORMATION
  Report Type: 
  Country: None (occurrence: None)
  Receive Date: 20070829
  Receipt Date: 20070827
  Transmission Date: 20080115
  Serious: Yes (Other)
  Sender: FDA-Public Use
  Company Number: US-BOEHRINGER INGELHEIM PHARMACEUTICALS, INC.-2007-BP-19950BP

PATIENT
  Age: 71 Year
  Sex: Male

DRUGS (3)
  1. SPIRIVA [Suspect]
     Indication: EMPHYSEMA
     Route: 055
     Dates: start: 20060101
  2. PULMICORT [Concomitant]
  3. SINGULAIR [Concomitant]

REACTIONS (1)
  - PROSTATE CANCER [None]
